FAERS Safety Report 7800980-8 (Version None)
Quarter: 2011Q4

REPORT INFORMATION
  Report Type: 
  Country: None (occurrence: None)
  Receive Date: 20111007
  Receipt Date: 20110927
  Transmission Date: 20120403
  Serious: Yes (Hospitalization)
  Sender: FDA-Public Use
  Company Number: FR-BIOGENIDEC-2011BI017673

PATIENT
  Age: 46 Year
  Sex: Male

DRUGS (6)
  1. LEVETIRACETAM [Concomitant]
     Indication: CONVULSION PROPHYLAXIS
     Route: 048
     Dates: start: 20080901
  2. ESOMEPRAZOLE MAGNESIUM [Concomitant]
     Indication: GASTRIC ULCER
     Route: 048
     Dates: start: 20110416
  3. TYSABRI [Suspect]
     Indication: MULTIPLE SCLEROSIS
     Route: 042
     Dates: start: 20080923
  4. HEPTAMINOL [Concomitant]
     Indication: HYPOTENSION
     Route: 048
     Dates: start: 20020601
  5. PHLOROGLUCINOL [Concomitant]
     Indication: MUSCLE SPASMS
     Route: 048
     Dates: start: 20110416
  6. LYSINE ACETYLSALICYLATE [Concomitant]
     Indication: ANTIINFLAMMATORY THERAPY
     Route: 048
     Dates: start: 20110416

REACTIONS (1)
  - CHOLECYSTITIS ACUTE [None]
